FAERS Safety Report 5541506-1 (Version None)
Quarter: 2007Q4

REPORT INFORMATION
  Report Type: 
  Country: None (occurrence: None)
  Receive Date: 20071210
  Receipt Date: 20071205
  Transmission Date: 20080405
  Serious: Yes (Other)
  Sender: FDA-Public Use
  Company Number: FR-BRISTOL-MYERS SQUIBB COMPANY-14008114

PATIENT
  Age: 40 Year
  Sex: Male

DRUGS (1)
  1. PRAVASTATIN [Suspect]
     Indication: HYPERCHOLESTEROLAEMIA
     Dosage: THERAPY DURATION-FEW YEARS
     Route: 048
     Dates: end: 20071030

REACTIONS (2)
  - MUSCLE RUPTURE [None]
  - MUSCLE SPASMS [None]
